FAERS Safety Report 9757089 (Version 1)
Quarter: 2013Q4

REPORT INFORMATION
  Report Type: Spontaneous
  Country: US (occurrence: US)
  Receive Date: 20131213
  Receipt Date: 20131213
  Transmission Date: 20140711
  Serious: Yes (Hospitalization)
  Sender: FDA-Public Use
  Company Number: US-GILEAD-2013-0090000

PATIENT
  Sex: Female

DRUGS (2)
  1. LETAIRIS [Suspect]
     Indication: PRODUCT USED FOR UNKNOWN INDICATION
     Dosage: 10 MG, QD
     Route: 048
     Dates: start: 20100830
  2. WARFARIN SODIUM [Concomitant]

REACTIONS (4)
  - Viral infection [Unknown]
  - Energy increased [Unknown]
  - Unevaluable event [Unknown]
  - Asthenia [Unknown]
